FAERS Safety Report 21173190 (Version 1)
Quarter: 2022Q3

REPORT INFORMATION
  Report Type: Spontaneous
  Country: US (occurrence: None)
  Receive Date: 20220804
  Receipt Date: 20220804
  Transmission Date: 20221027
  Serious: Yes (Death)
  Sender: FDA-Public Use
  Company Number: None

PATIENT
  Age: 85 Year
  Sex: Male

DRUGS (17)
  1. PROLIA [Suspect]
     Active Substance: DENOSUMAB
     Indication: Osteoporosis
     Dosage: OTHER FREQUENCY : EVERY 6 MONTHS;?
     Route: 058
  2. ASPIRIN [Concomitant]
     Active Substance: ASPIRIN
  3. ESCITALOPRAM [Concomitant]
     Active Substance: ESCITALOPRAM OXALATE
  4. FENOFIBRATE [Concomitant]
     Active Substance: FENOFIBRATE
  5. LISINOPRIL [Concomitant]
     Active Substance: LISINOPRIL
  6. METHOTREXATE [Concomitant]
     Active Substance: METHOTREXATE
  7. PANTOPRAZOLE [Concomitant]
     Active Substance: PANTOPRAZOLE
  8. VITAMIN D [Concomitant]
     Active Substance: VITAMIN D NOS
  9. FISH OIL [Concomitant]
     Active Substance: FISH OIL
  10. FOLIC ACID [Concomitant]
     Active Substance: FOLIC ACID
  11. GARLIC [Concomitant]
     Active Substance: GARLIC
  12. TYLENOL PM [Concomitant]
     Active Substance: ACETAMINOPHEN\DIPHENHYDRAMINE
  13. FLOMAX [Concomitant]
     Active Substance: TAMSULOSIN HYDROCHLORIDE
  14. HYDROXYCHOLORQUINE [Concomitant]
  15. NIACIN [Concomitant]
     Active Substance: NIACIN
  16. SODIUM BICARBONATE [Concomitant]
     Active Substance: SODIUM BICARBONATE
  17. FERROUS SULFATE [Concomitant]
     Active Substance: FERROUS SULFATE

REACTIONS (1)
  - Death [None]

NARRATIVE: CASE EVENT DATE: 20220630
